FAERS Safety Report 13094240 (Version 1)
Quarter: 2017Q1

REPORT INFORMATION
  Report Type: Spontaneous
  Country: US (occurrence: US)
  Receive Date: 20170106
  Receipt Date: 20170106
  Transmission Date: 20170428
  Serious: No
  Sender: FDA-Public Use
  Company Number: US-DRREDDYS-USA/USA/16/0084704

PATIENT
  Age: 62 Year
  Sex: Female
  Weight: 57.15 kg

DRUGS (2)
  1. NICOTINE. [Suspect]
     Active Substance: NICOTINE
     Indication: SMOKING CESSATION THERAPY
     Route: 061
     Dates: start: 20161105
  2. SPIRIVA [Concomitant]
     Active Substance: TIOTROPIUM BROMIDE MONOHYDRATE
     Indication: PRODUCT USED FOR UNKNOWN INDICATION
     Route: 065

REACTIONS (9)
  - Depression [Unknown]
  - Treatment noncompliance [Unknown]
  - Crying [Unknown]
  - Nicotine dependence [Unknown]
  - Overdose [Unknown]
  - Psychomotor hyperactivity [Unknown]
  - Product quality issue [Unknown]
  - Nervousness [Unknown]
  - Insomnia [Unknown]

NARRATIVE: CASE EVENT DATE: 20161107
